FAERS Safety Report 6795945-1 (Version None)
Quarter: 2010Q2

REPORT INFORMATION
  Report Type: 
  Country: None (occurrence: None)
  Receive Date: 20100625
  Receipt Date: 20100617
  Transmission Date: 20101027
  Serious: Yes (Hospitalization)
  Sender: FDA-Public Use
  Company Number: B0661124A

PATIENT
  Age: 60 Year
  Sex: Male
  Weight: 65 kg

DRUGS (12)
  1. AMOXICILLIN [Suspect]
  2. ALUPENT [Suspect]
     Dosage: 60MG PER DAY
     Route: 048
     Dates: start: 20100427, end: 20100430
  3. NICOTINE [Concomitant]
     Route: 055
     Dates: start: 20100429
  4. PIRITON [Concomitant]
     Dates: start: 20100520
  5. NICORETTE [Concomitant]
     Dosage: 15MG CUMULATIVE DOSE
     Route: 062
     Dates: start: 20100429
  6. AMITRIPTYLINE HYDROCHLORIDE [Concomitant]
     Dosage: 100MG PER DAY
     Dates: start: 20090105
  7. MELOXICAM [Concomitant]
     Dosage: 15MG PER DAY
     Dates: start: 20070914
  8. PROPRANOLOL HYDROCHLORIDE [Concomitant]
     Dosage: 80MG PER DAY
     Dates: start: 20070816
  9. CO-DYDRAMOL [Concomitant]
     Indication: PAIN
     Dates: start: 20070221
  10. SALAMOL [Concomitant]
     Route: 055
     Dates: start: 20051026
  11. PANTOPRAZOLE [Concomitant]
     Dosage: 40MG PER DAY
     Dates: start: 20050527
  12. FLIXONASE [Concomitant]
     Dates: start: 20021028

REACTIONS (2)
  - BLISTER [None]
  - VISUAL IMPAIRMENT [None]
